FAERS Safety Report 8912267 (Version 1)
Quarter: 2012Q4

REPORT INFORMATION
  Report Type: 
  Country: US (occurrence: US)
  Receive Date: 20121116
  Receipt Date: 20121116
  Transmission Date: 20130627
  Serious: No
  Sender: FDA-Public Use
  Company Number: US-BAYER-2012-119024

PATIENT
  Age: 41 Year
  Sex: Male

DRUGS (2)
  1. GADAVIST [Suspect]
     Dosage: 7 ml, ONCE
     Dates: start: 20121113, end: 20121113
  2. GADAVIST [Suspect]
     Dosage: 1 ml, ONCE
     Dates: start: 20121113, end: 20121113

REACTIONS (5)
  - Nausea [Recovered/Resolved]
  - Dizziness [Recovered/Resolved]
  - Salivary hypersecretion [Recovered/Resolved]
  - Nausea [None]
  - Vomiting [None]
